FAERS Safety Report 7725982-1 (Version None)
Quarter: 2011Q3

REPORT INFORMATION
  Report Type: 
  Country: None (occurrence: None)
  Receive Date: 20110902
  Receipt Date: 20110818
  Transmission Date: 20111222
  Serious: Yes (Other)
  Sender: FDA-Public Use
  Company Number: TW-WATSON-2011-13467

PATIENT
  Age: 52 Year
  Sex: Male

DRUGS (1)
  1. RISPERIDONE [Suspect]
     Indication: SCHIZOPHRENIA
     Dosage: 2 MG, BID
     Route: 048

REACTIONS (4)
  - SKIN LESION [None]
  - HYPERPROLACTINAEMIA [None]
  - GRANULOMA [None]
  - GYNAECOMASTIA [None]
